FAERS Safety Report 5008329-3 (Version None)
Quarter: 2006Q2

REPORT INFORMATION
  Report Type: 
  Country: None (occurrence: None)
  Receive Date: 20060403
  Receipt Date: 20050419
  Transmission Date: 20061013
  Serious: No
  Sender: FDA-Public Use
  Company Number: 04-000813

PATIENT
  Age: 58 Year
  Sex: Female
  Weight: 79.4 kg

DRUGS (5)
  1. ESTRACE [Suspect]
     Indication: VULVOVAGINAL DRYNESS
     Dosage: 2 G, BIWEEKLY, VAGINAL
     Route: 067
     Dates: start: 19900101, end: 20041201
  2. COVERA-HS [Concomitant]
  3. PROVERA [Concomitant]
  4. CIPROFLOXACIN HCL [Concomitant]
  5. ALLERGY MEDICATION [Concomitant]

REACTIONS (2)
  - CHOLELITHIASIS [None]
  - VAGINAL BURNING SENSATION [None]
